FAERS Safety Report 14240367 (Version 1)
Quarter: 2017Q4

REPORT INFORMATION
  Report Type: Spontaneous
  Country: US (occurrence: US)
  Receive Date: 20171129
  Receipt Date: 20171129
  Transmission Date: 20180321
  Serious: Yes (Other)
  Sender: FDA-Public Use
  Company Number: None

PATIENT
  Sex: Male
  Weight: 69.75 kg

DRUGS (8)
  1. VITAMIN D3 [Concomitant]
     Active Substance: CHOLECALCIFEROL
  2. CHLORHEXIDINE [Suspect]
     Active Substance: CHLORHEXIDINE
     Indication: SURGERY
     Route: 061
     Dates: start: 20171107, end: 20171107
  3. RED YEAST RICE [Concomitant]
     Active Substance: DIETARY SUPPLEMENT
  4. VITAMIN C [Concomitant]
     Active Substance: ASCORBIC ACID
  5. COQ10 [Concomitant]
     Active Substance: UBIDECARENONE
  6. ALLEGRA [Concomitant]
     Active Substance: FEXOFENADINE HYDROCHLORIDE
  7. ASPIRIN. [Concomitant]
     Active Substance: ASPIRIN
  8. CIPRO [Concomitant]
     Active Substance: CIPROFLOXACIN HYDROCHLORIDE

REACTIONS (6)
  - Skin burning sensation [None]
  - Penis disorder [None]
  - Chemical burn of skin [None]
  - Impaired healing [None]
  - Skin exfoliation [None]
  - Dysuria [None]

NARRATIVE: CASE EVENT DATE: 20171107
